FAERS Safety Report 9784093 (Version 2)
Quarter: 2014Q1

REPORT INFORMATION
  Report Type: Spontaneous
  Country: AR (occurrence: AR)
  Receive Date: 20131226
  Receipt Date: 20140109
  Transmission Date: 20141002
  Serious: Yes (Hospitalization)
  Sender: FDA-Public Use
  Company Number: AR-PFIZER INC-2013365121

PATIENT
  Age: 42 Year
  Sex: Female

DRUGS (1)
  1. SUTENT [Suspect]
     Indication: RENAL CELL CARCINOMA
     Dosage: 50 MG, 1X/DAY SCHEME 4/2
     Dates: start: 20130814

REACTIONS (3)
  - Respiratory disorder [Recovered/Resolved]
  - Bronchitis [Recovered/Resolved]
  - Pyrexia [Recovered/Resolved]
